FAERS Safety Report 22605086 (Version 1)
Quarter: 2023Q2

REPORT INFORMATION
  Report Type: Spontaneous
  Country: IL (occurrence: IL)
  Receive Date: 20230615
  Receipt Date: 20230615
  Transmission Date: 20230721
  Serious: Yes (Other)
  Sender: FDA-Public Use
  Company Number: IL-MYLANLABS-2023M1062748

PATIENT
  Age: 21 Year
  Sex: Male

DRUGS (52)
  1. PHENYTOIN [Suspect]
     Active Substance: PHENYTOIN
     Indication: Febrile convulsion
     Dosage: UNK
     Route: 065
  2. PHENYTOIN [Suspect]
     Active Substance: PHENYTOIN
     Indication: Drop attacks
  3. PHENYTOIN [Suspect]
     Active Substance: PHENYTOIN
     Indication: Focal dyscognitive seizures
  4. PHENYTOIN [Suspect]
     Active Substance: PHENYTOIN
     Indication: Partial seizures with secondary generalisation
  5. PHENOBARBITAL [Suspect]
     Active Substance: PHENOBARBITAL
     Indication: Febrile convulsion
     Dosage: UNK
     Route: 065
  6. PHENOBARBITAL [Suspect]
     Active Substance: PHENOBARBITAL
     Indication: Drop attacks
  7. PHENOBARBITAL [Suspect]
     Active Substance: PHENOBARBITAL
     Indication: Focal dyscognitive seizures
  8. PHENOBARBITAL [Suspect]
     Active Substance: PHENOBARBITAL
     Indication: Partial seizures with secondary generalisation
  9. CARBAMAZEPINE [Suspect]
     Active Substance: CARBAMAZEPINE
     Indication: Febrile convulsion
     Dosage: UNK
     Route: 065
  10. CARBAMAZEPINE [Suspect]
     Active Substance: CARBAMAZEPINE
     Indication: Drop attacks
  11. CARBAMAZEPINE [Suspect]
     Active Substance: CARBAMAZEPINE
     Indication: Focal dyscognitive seizures
  12. CARBAMAZEPINE [Suspect]
     Active Substance: CARBAMAZEPINE
     Indication: Partial seizures with secondary generalisation
  13. TOPIRAMATE [Suspect]
     Active Substance: TOPIRAMATE
     Indication: Febrile convulsion
     Dosage: UNK
     Route: 065
  14. TOPIRAMATE [Suspect]
     Active Substance: TOPIRAMATE
     Indication: Drop attacks
  15. TOPIRAMATE [Suspect]
     Active Substance: TOPIRAMATE
     Indication: Focal dyscognitive seizures
  16. TOPIRAMATE [Suspect]
     Active Substance: TOPIRAMATE
     Indication: Partial seizures with secondary generalisation
  17. SULTHIAME [Suspect]
     Active Substance: SULTHIAME
     Indication: Febrile convulsion
     Dosage: UNK
     Route: 065
  18. SULTHIAME [Suspect]
     Active Substance: SULTHIAME
     Indication: Drop attacks
  19. SULTHIAME [Suspect]
     Active Substance: SULTHIAME
     Indication: Focal dyscognitive seizures
  20. SULTHIAME [Suspect]
     Active Substance: SULTHIAME
     Indication: Partial seizures with secondary generalisation
  21. RUFINAMIDE [Suspect]
     Active Substance: RUFINAMIDE
     Indication: Febrile convulsion
     Dosage: UNK
     Route: 065
  22. RUFINAMIDE [Suspect]
     Active Substance: RUFINAMIDE
     Indication: Drop attacks
  23. RUFINAMIDE [Suspect]
     Active Substance: RUFINAMIDE
     Indication: Focal dyscognitive seizures
  24. RUFINAMIDE [Suspect]
     Active Substance: RUFINAMIDE
     Indication: Partial seizures with secondary generalisation
  25. ZONISAMIDE [Suspect]
     Active Substance: ZONISAMIDE
     Indication: Febrile convulsion
     Dosage: UNK
     Route: 065
  26. ZONISAMIDE [Suspect]
     Active Substance: ZONISAMIDE
     Indication: Drop attacks
  27. ZONISAMIDE [Suspect]
     Active Substance: ZONISAMIDE
     Indication: Focal dyscognitive seizures
  28. ZONISAMIDE [Suspect]
     Active Substance: ZONISAMIDE
     Indication: Partial seizures with secondary generalisation
  29. PERAMPANEL [Suspect]
     Active Substance: PERAMPANEL
     Indication: Febrile convulsion
     Dosage: UNK
     Route: 065
  30. PERAMPANEL [Suspect]
     Active Substance: PERAMPANEL
     Indication: Drop attacks
  31. PERAMPANEL [Suspect]
     Active Substance: PERAMPANEL
     Indication: Focal dyscognitive seizures
  32. PERAMPANEL [Suspect]
     Active Substance: PERAMPANEL
     Indication: Partial seizures with secondary generalisation
  33. VALPROIC ACID [Concomitant]
     Active Substance: VALPROIC ACID
     Indication: Febrile convulsion
     Dosage: UNK (INITIAL DOSE NOT STATED)
     Route: 065
  34. VALPROIC ACID [Concomitant]
     Active Substance: VALPROIC ACID
     Indication: Drop attacks
     Dosage: 500 MILLIGRAM, QD
     Route: 065
  35. VALPROIC ACID [Concomitant]
     Active Substance: VALPROIC ACID
     Indication: Focal dyscognitive seizures
  36. VALPROIC ACID [Concomitant]
     Active Substance: VALPROIC ACID
     Indication: Partial seizures with secondary generalisation
  37. LEVETIRACETAM [Concomitant]
     Active Substance: LEVETIRACETAM
     Indication: Febrile convulsion
     Dosage: UNK (INITIAL DOSE NOT STATED)
     Route: 065
  38. LEVETIRACETAM [Concomitant]
     Active Substance: LEVETIRACETAM
     Indication: Drop attacks
     Dosage: 3500 MILLIGRAM
     Route: 065
  39. LEVETIRACETAM [Concomitant]
     Active Substance: LEVETIRACETAM
     Indication: Focal dyscognitive seizures
  40. LEVETIRACETAM [Concomitant]
     Active Substance: LEVETIRACETAM
     Indication: Partial seizures with secondary generalisation
  41. CLOBAZAM [Concomitant]
     Active Substance: CLOBAZAM
     Indication: Febrile convulsion
     Dosage: UNK (INITIAL DOSE NOT STATED)
     Route: 065
  42. CLOBAZAM [Concomitant]
     Active Substance: CLOBAZAM
     Indication: Drop attacks
     Dosage: 20 MILLIGRAM
     Route: 065
  43. CLOBAZAM [Concomitant]
     Active Substance: CLOBAZAM
     Indication: Focal dyscognitive seizures
  44. CLOBAZAM [Concomitant]
     Active Substance: CLOBAZAM
     Indication: Partial seizures with secondary generalisation
  45. LACOSAMIDE [Concomitant]
     Active Substance: LACOSAMIDE
     Indication: Febrile convulsion
     Dosage: UNK (INITIAL DOSE NOT STATED)
     Route: 065
  46. LACOSAMIDE [Concomitant]
     Active Substance: LACOSAMIDE
     Indication: Drop attacks
     Dosage: 300 MILLIGRAM, QD
     Route: 065
  47. LACOSAMIDE [Concomitant]
     Active Substance: LACOSAMIDE
     Indication: Focal dyscognitive seizures
  48. LACOSAMIDE [Concomitant]
     Active Substance: LACOSAMIDE
     Indication: Partial seizures with secondary generalisation
  49. DIAZEPAM [Concomitant]
     Active Substance: DIAZEPAM
     Indication: Febrile convulsion
     Dosage: 20 MILLIGRAM
     Route: 042
  50. DIAZEPAM [Concomitant]
     Active Substance: DIAZEPAM
     Indication: Drop attacks
  51. DIAZEPAM [Concomitant]
     Active Substance: DIAZEPAM
     Indication: Focal dyscognitive seizures
  52. DIAZEPAM [Concomitant]
     Active Substance: DIAZEPAM
     Indication: Partial seizures with secondary generalisation

REACTIONS (1)
  - Drug ineffective [Unknown]
